FAERS Safety Report 24762182 (Version 2)
Quarter: 2025Q2

REPORT INFORMATION
  Report Type: Spontaneous
  Country: TH (occurrence: TH)
  Receive Date: 20241221
  Receipt Date: 20250602
  Transmission Date: 20250717
  Serious: No
  Sender: ABBVIE
  Company Number: TH-ABBVIE-6046250

PATIENT

DRUGS (1)
  1. ALPHAGAN P [Suspect]
     Active Substance: BRIMONIDINE TARTRATE
     Indication: Product used for unknown indication
     Route: 047

REACTIONS (1)
  - No adverse event [Unknown]
